FAERS Safety Report 7935611-X (Version None)
Quarter: 2011Q4

REPORT INFORMATION
  Report Type: 
  Country: None (occurrence: None)
  Receive Date: 20111123
  Receipt Date: 20111111
  Transmission Date: 20120403
  Serious: Yes (Hospitalization, Other)
  Sender: FDA-Public Use
  Company Number: US-ELI_LILLY_AND_COMPANY-US201111004895

PATIENT
  Age: 58 Year
  Sex: Male

DRUGS (3)
  1. LANOXIN [Concomitant]
  2. CYMBALTA [Suspect]
     Indication: DEPRESSION
     Dosage: 30 MG, UNK
     Dates: start: 20080101, end: 20080101
  3. ALDACTONE [Concomitant]

REACTIONS (11)
  - HOSPITALISATION [None]
  - PARANOIA [None]
  - DEPRESSION [None]
  - LABORATORY TEST ABNORMAL [None]
  - DRUG INEFFECTIVE [None]
  - LIVER DISORDER [None]
  - SUICIDAL IDEATION [None]
  - AGORAPHOBIA [None]
  - CEREBROVASCULAR ACCIDENT [None]
  - AGGRESSION [None]
  - SURGERY [None]
